FAERS Safety Report 7758368-4 (Version None)
Quarter: 2011Q3

REPORT INFORMATION
  Report Type: 
  Country: None (occurrence: None)
  Receive Date: 20110919
  Receipt Date: 20110914
  Transmission Date: 20111222
  Serious: Yes (Hospitalization)
  Sender: FDA-Public Use
  Company Number: US-SHIRE-ALL1-2011-02663

PATIENT
  Sex: Male

DRUGS (1)
  1. LIALDA [Suspect]
     Indication: COLITIS ULCERATIVE
     Dosage: 1.2 G, UNKNOWN
     Route: 048
     Dates: start: 20110101, end: 20110701

REACTIONS (4)
  - JAUNDICE [None]
  - PROCTITIS ULCERATIVE [None]
  - CHOLESTASIS [None]
  - HEPATITIS [None]
